FAERS Safety Report 5837536-2 (Version None)
Quarter: 2008Q3

REPORT INFORMATION
  Report Type: 
  Country: None (occurrence: None)
  Receive Date: 20080807
  Receipt Date: 20080729
  Transmission Date: 20090109
  Serious: Yes (Other)
  Sender: FDA-Public Use
  Company Number: NL-ELI_LILLY_AND_COMPANY-NL200807005791

PATIENT
  Sex: Female
  Weight: 59 kg

DRUGS (3)
  1. STRATTERA [Suspect]
     Indication: ATTENTION DEFICIT/HYPERACTIVITY DISORDER
     Dosage: UNK, UNKNOWN
     Route: 065
     Dates: start: 20060801, end: 20061101
  2. STRATTERA [Suspect]
     Dosage: 60 MG, UNKNOWN
     Route: 065
     Dates: start: 20070701, end: 20080620
  3. YASMIN [Concomitant]
     Indication: CONTRACEPTION
     Dosage: UNK, UNKNOWN
     Route: 065
     Dates: start: 20070801

REACTIONS (4)
  - AFFECT LABILITY [None]
  - DEPRESSED MOOD [None]
  - DRUG EXPOSURE DURING PREGNANCY [None]
  - SUICIDAL IDEATION [None]
